FAERS Safety Report 15244687 (Version 1)
Quarter: 2018Q3

REPORT INFORMATION
  Report Type: Spontaneous
  Country: CH (occurrence: CH)
  Receive Date: 20180806
  Receipt Date: 20180806
  Transmission Date: 20181010
  Serious: Yes (Other)
  Sender: FDA-Public Use
  Company Number: CH-LPDUSPRD-20181345

PATIENT

DRUGS (1)
  1. FERINJECT [Suspect]
     Active Substance: FERRIC CARBOXYMALTOSE
     Dosage: UNKNOWN
     Route: 041

REACTIONS (6)
  - Feeling abnormal [Unknown]
  - Nausea [Recovered/Resolved]
  - Anger [Unknown]
  - Basedow^s disease [Unknown]
  - Decreased activity [Unknown]
  - Stress [Unknown]

NARRATIVE: CASE EVENT DATE: 2018
